FAERS Safety Report 5752912-4 (Version None)
Quarter: 2008Q2

REPORT INFORMATION
  Report Type: 
  Country: None (occurrence: None)
  Receive Date: 20080529
  Receipt Date: 20080521
  Transmission Date: 20081010
  Serious: Yes (Other)
  Sender: FDA-Public Use
  Company Number: JP-PFIZER INC-2008044925

PATIENT
  Age: 82 Year
  Sex: Female

DRUGS (2)
  1. DISOPYRAMIDE PHOSPHATE [Suspect]
     Route: 048
  2. GLYCYRRHIZIC ACID [Interacting]
     Route: 048

REACTIONS (5)
  - DRUG INTERACTION [None]
  - EXTRASYSTOLES [None]
  - HYPOKALAEMIA [None]
  - LONG QT SYNDROME [None]
  - VENTRICULAR TACHYCARDIA [None]
